FAERS Safety Report 26200461 (Version 1)
Quarter: 2025Q4

REPORT INFORMATION
  Report Type: 
  Country: AU (occurrence: AU)
  Receive Date: 20251225
  Receipt Date: 20251225
  Transmission Date: 20260118
  Serious: Yes (Other)
  Sender: CELLTRION
  Company Number: AU-CELLTRION INC.-2025AU045658

PATIENT

DRUGS (1)
  1. INFLIXIMAB [Suspect]
     Active Substance: INFLIXIMAB
     Indication: Product used for unknown indication

REACTIONS (14)
  - Crohn^s disease [Unknown]
  - Arthritis bacterial [Unknown]
  - C-reactive protein abnormal [Unknown]
  - Drug level decreased [Unknown]
  - Haemoglobin abnormal [Unknown]
  - Joint swelling [Unknown]
  - Platelet disorder [Unknown]
  - Pyrexia [Unknown]
  - Arthralgia [Unknown]
  - Bronchitis [Unknown]
  - Chest pain [Unknown]
  - Hyperhidrosis [Unknown]
  - Pain [Unknown]
  - Intentional product use issue [Unknown]
